FAERS Safety Report 9128659 (Version 2)
Quarter: 2013Q1

REPORT INFORMATION
  Report Type: Spontaneous
  Country: US (occurrence: US)
  Receive Date: 20130228
  Receipt Date: 20130311
  Transmission Date: 20140127
  Serious: Yes (Other)
  Sender: FDA-Public Use
  Company Number: US-JNJFOC-20130212106

PATIENT
  Sex: Female

DRUGS (2)
  1. REMICADE [Suspect]
     Indication: UVEITIS
     Route: 042
     Dates: start: 20130201
  2. REMICADE [Suspect]
     Indication: UVEITIS
     Route: 042

REACTIONS (5)
  - Chest pain [Unknown]
  - Pleural effusion [Unknown]
  - Lupus-like syndrome [Unknown]
  - Arthralgia [Unknown]
  - Musculoskeletal stiffness [Unknown]
